FAERS Safety Report 5613936-0 (Version None)
Quarter: 2008Q1

REPORT INFORMATION
  Report Type: 
  Country: None (occurrence: None)
  Receive Date: 20080129
  Receipt Date: 20080117
  Transmission Date: 20080703
  Serious: Yes (Other)
  Sender: FDA-Public Use
  Company Number: 230005E07DEU

PATIENT
  Age: 46 Year
  Sex: Female
  Weight: 78 kg

DRUGS (5)
  1. REBIF [Suspect]
     Indication: MULTIPLE SCLEROSIS
     Dosage: 44 MCG, 3 IN 1 WEEKS, SUBCUTANEOUS
     Route: 058
     Dates: start: 20070803, end: 20071210
  2. IBUPROFEN [Suspect]
     Indication: INFLUENZA IMMUNISATION
     Dosage: 400 MG, 3 IN 1 DAYS, ORAL; 400 MG, 1 IN 1 DAYS, ORAL
     Route: 048
     Dates: start: 20070803, end: 20071210
  3. IBUPROFEN [Suspect]
     Indication: INFLUENZA IMMUNISATION
     Dosage: 400 MG, 3 IN 1 DAYS, ORAL; 400 MG, 1 IN 1 DAYS, ORAL
     Route: 048
     Dates: start: 20080115, end: 20080115
  4. PHENOXYMETHYLPENICILLIN [Concomitant]
  5. SINUPRET [Concomitant]

REACTIONS (2)
  - LIP SWELLING [None]
  - SWELLING FACE [None]
